FAERS Safety Report 22041577 (Version 1)
Quarter: 2023Q1

REPORT INFORMATION
  Report Type: Spontaneous
  Country: BR (occurrence: BR)
  Receive Date: 20230227
  Receipt Date: 20230227
  Transmission Date: 20230418
  Serious: Yes (Other)
  Sender: FDA-Public Use
  Company Number: BR-DSJP-DSE-2023-107309

PATIENT
  Age: 77 Year
  Sex: Female
  Weight: 85 kg

DRUGS (3)
  1. EDOXABAN TOSYLATE [Suspect]
     Active Substance: EDOXABAN TOSYLATE
     Indication: Product used for unknown indication
     Dosage: 30 (MG) 1 PER 1 DAY
     Route: 048
     Dates: start: 20221223, end: 20221226
  2. ENOXAPARIN SODIUM [Suspect]
     Active Substance: ENOXAPARIN SODIUM
     Indication: Product used for unknown indication
     Dosage: 40 (MG) 1 PER 1 DAY
     Route: 058
     Dates: start: 20221109
  3. ENOXAPARIN SODIUM [Suspect]
     Active Substance: ENOXAPARIN SODIUM
     Dosage: 20 MG
     Dates: start: 20221230

REACTIONS (4)
  - Platelet count decreased [Recovered/Resolved]
  - Ecchymosis [Recovered/Resolved]
  - Haematuria [Recovered/Resolved]
  - Haemoglobin decreased [Recovered/Resolved]

NARRATIVE: CASE EVENT DATE: 20221227
